FAERS Safety Report 11239539 (Version 1)
Quarter: 2015Q3

REPORT INFORMATION
  Report Type: Spontaneous
  Country: AT (occurrence: None)
  Receive Date: 20150701
  Receipt Date: 20150701
  Transmission Date: 20151125
  Serious: No
  Sender: FDA-Public Use
  Company Number: AT-LHC-2015075

PATIENT
  Age: 64 Year
  Sex: Male
  Weight: 82 kg

DRUGS (9)
  1. ZOLIPDEM (TABLET) [Concomitant]
  2. PANTOLOC (PANTROPRAZOLE) PPT [Concomitant]
  3. ALLOPURINOL. [Concomitant]
     Active Substance: ALLOPURINOL
  4. CONOXIA, MEDIZINISCHES GAS (OXYGEN) (INHALATION GAS) (OXYGEN) (VERUM) [Suspect]
     Active Substance: OXYGEN
     Indication: METASTASES TO LUNG
     Dosage: 1 2/MIN, 4 HOURS, INHALATION
     Route: 055
     Dates: start: 20150612, end: 20150612
  5. DIPIMERCK (DIGITOXIN) (TABLET) [Concomitant]
  6. ENOXAPARIN [Concomitant]
     Active Substance: ENOXAPARIN
  7. BISOPROLOL [Concomitant]
     Active Substance: BISOPROLOL
  8. BERODUAL (FENOTEROL/IPRATROPIUM) [Concomitant]
  9. SIMETICON [Concomitant]

REACTIONS (3)
  - Headache [None]
  - Vertigo [None]
  - Malaise [None]

NARRATIVE: CASE EVENT DATE: 20150612
